FAERS Safety Report 17854998 (Version 1)
Quarter: 2020Q2

REPORT INFORMATION
  Report Type: Spontaneous
  Country: US (occurrence: US)
  Receive Date: 20200603
  Receipt Date: 20200603
  Transmission Date: 20200714
  Serious: No
  Sender: FDA-Public Use
  Company Number: US-GILEAD-2020-0469076

PATIENT
  Age: 67 Year
  Sex: Female
  Weight: 87.98 kg

DRUGS (4)
  1. AMBRISENTAN [Suspect]
     Active Substance: AMBRISENTAN
     Indication: PULMONARY ARTERIAL HYPERTENSION
     Dosage: UNK
     Route: 065
  2. REMODULIN [Suspect]
     Active Substance: TREPROSTINIL
     Dosage: 0.025 ?G/KG
     Route: 058
  3. REVATIO [Concomitant]
     Active Substance: SILDENAFIL CITRATE
  4. REMODULIN [Suspect]
     Active Substance: TREPROSTINIL
     Indication: PULMONARY ARTERIAL HYPERTENSION
     Dosage: 0.015 ?G/KG
     Route: 058
     Dates: start: 20200125

REACTIONS (7)
  - Infusion site pain [Unknown]
  - Fatigue [Recovering/Resolving]
  - Dyspnoea exertional [Unknown]
  - Asthenia [Recovering/Resolving]
  - Dyspnoea [Recovering/Resolving]
  - Dizziness [Unknown]
  - Headache [Recovering/Resolving]

NARRATIVE: CASE EVENT DATE: 2020
